FAERS Safety Report 6631522 (Version 5)
Quarter: 2015Q3

REPORT INFORMATION
  Report Type: Spontaneous
  Country: FR (occurrence: FR)
  Receive Date: 20080502
  Receipt Date: 20150811
  Transmission Date: 20151125
  Serious: Yes (Death, Congenital Anomaly)
  Sender: FDA-Public Use
  Company Number: FR-GILEAD-2008-0016228

PATIENT
  Age: 26 Year
  Sex: Female

DRUGS (2)
  1. SUSTIVA [Suspect]
     Active Substance: EFAVIRENZ
     Indication: HIV INFECTION
     Dosage: 600 MG, QD
     Route: 048
     Dates: start: 20060101
  2. TRUVADA [Suspect]
     Active Substance: EMTRICITABINE\TENOFOVIR DISOPROXIL FUMARATE
     Indication: HIV INFECTION
     Dosage: 1 DF, QD
     Route: 048
     Dates: start: 20060101

REACTIONS (3)
  - Ultrasound antenatal screen abnormal [Unknown]
  - Abortion induced [Recovered/Resolved]
  - Congenital anomaly [Fatal]

NARRATIVE: CASE EVENT DATE: 20080125
